FAERS Safety Report 5442741-3 (Version None)
Quarter: 2007Q3

REPORT INFORMATION
  Report Type: 
  Country: None (occurrence: None)
  Receive Date: 20070904
  Receipt Date: 20070816
  Transmission Date: 20080115
  Serious: No
  Sender: FDA-Public Use
  Company Number: US-BOEHRINGER INGELHEIM PHARMACEUTICALS, INC.-2007-BP-19361BP

PATIENT
  Age: 72 Year
  Sex: Male

DRUGS (3)
  1. FLOMAX [Suspect]
     Indication: BENIGN PROSTATIC HYPERPLASIA
     Route: 048
     Dates: start: 20060101, end: 20070501
  2. FLOMAX [Suspect]
     Route: 048
     Dates: start: 20070501
  3. AVODART [Concomitant]
     Indication: BENIGN PROSTATIC HYPERPLASIA
     Route: 048
     Dates: start: 20070501

REACTIONS (3)
  - DRUG INEFFECTIVE [None]
  - URETERAL DISORDER [None]
  - URETERIC DILATATION [None]
